FAERS Safety Report 12321084 (Version 1)
Quarter: 2016Q2

REPORT INFORMATION
  Report Type: Report from Study
  Country: BR (occurrence: BR)
  Receive Date: 20160502
  Receipt Date: 20160502
  Transmission Date: 20160815
  Serious: Yes (Other)
  Sender: FDA-Public Use
  Company Number: BR-BRISTOL-MYERS SQUIBB COMPANY-BMS-2016-032159

PATIENT
  Sex: Female

DRUGS (1)
  1. ABATACEPT [Suspect]
     Active Substance: ABATACEPT
     Indication: RHEUMATOID ARTHRITIS
     Dosage: 1 DF, QMO
     Route: 042

REACTIONS (7)
  - Diverticulitis [Unknown]
  - Hypersensitivity [Unknown]
  - Eye disorder [Unknown]
  - Nasopharyngitis [Unknown]
  - Immunodeficiency [Unknown]
  - Rhinitis [Unknown]
  - Cough [Unknown]
